FAERS Safety Report 9973734 (Version 1)
Quarter: 2014Q1

REPORT INFORMATION
  Report Type: Spontaneous
  Country: GB (occurrence: GB)
  Receive Date: 20140306
  Receipt Date: 20140306
  Transmission Date: 20141002
  Serious: Yes (Other)
  Sender: FDA-Public Use
  Company Number: GB-WATSON-2014-03619

PATIENT
  Sex: 0

DRUGS (6)
  1. LAMOTRIGINE (UNKNOWN) [Suspect]
     Indication: PRODUCT USED FOR UNKNOWN INDICATION
     Dosage: 250 MG, BID; ORIGINAL DOSE WHEN RASH FIRST DEVELOPED
     Route: 048
  2. LAMOTRIGINE (UNKNOWN) [Suspect]
     Dosage: 200 MG, BID; MAXIMUM DOSE ON RECHALLENGE
     Route: 048
     Dates: start: 201309, end: 20131104
  3. RISPERIDONE (UNKNOWN) [Suspect]
     Indication: PRODUCT USED FOR UNKNOWN INDICATION
     Dosage: 1 MG, DAILY (ONGOING THROUGHOUT EVENT)
     Route: 048
  4. CLOBAZAM [Concomitant]
     Indication: PRODUCT USED FOR UNKNOWN INDICATION
     Dosage: 10 MG, PRN
     Route: 048
     Dates: start: 20130601
  5. TOPIRAMATE [Concomitant]
     Indication: PRODUCT USED FOR UNKNOWN INDICATION
     Dosage: 150 MG, BID; THIS DRUG WAS TAPERED OFF AND STOPPED AT TIME OF LAMOTRIGINE RECHALLENGE
     Route: 048
     Dates: end: 20131115
  6. LEVETIRACETAM [Concomitant]
     Indication: PRODUCT USED FOR UNKNOWN INDICATION
     Dosage: UNK
     Route: 065

REACTIONS (2)
  - Urticaria [Recovering/Resolving]
  - Dyspnoea [Unknown]
